FAERS Safety Report 16099517 (Version 1)
Quarter: 2019Q1

REPORT INFORMATION
  Report Type: Spontaneous
  Country: US (occurrence: US)
  Receive Date: 20190321
  Receipt Date: 20190321
  Transmission Date: 20190418
  Serious: No
  Sender: FDA-Public Use
  Company Number: US-BRACCO-2018US05685

PATIENT
  Sex: Male

DRUGS (1)
  1. CYSTOGRAFIN DILUTE [Suspect]
     Active Substance: DIATRIZOATE MEGLUMINE
     Indication: UROGRAM
     Dosage: 40 ML, SINGLE
     Dates: start: 20181101, end: 20181101

REACTIONS (2)
  - Drug ineffective [Unknown]
  - No adverse event [Unknown]

NARRATIVE: CASE EVENT DATE: 20181101
